FAERS Safety Report 7712894-2 (Version None)
Quarter: 2011Q3

REPORT INFORMATION
  Report Type: 
  Country: None (occurrence: None)
  Receive Date: 20110826
  Receipt Date: 20110818
  Transmission Date: 20111222
  Serious: Yes (Hospitalization)
  Sender: FDA-Public Use
  Company Number: PHHY2010US85860

PATIENT
  Sex: Female
  Weight: 59.19 kg

DRUGS (7)
  1. XANAX [Concomitant]
  2. NEUPOGEN [Concomitant]
  3. REVLIMID [Concomitant]
  4. EXJADE [Suspect]
     Dosage: 500 MG,
     Route: 048
     Dates: start: 20101003
  5. FOLIC ACID [Concomitant]
  6. EXJADE [Suspect]
     Indication: MYELODYSPLASTIC SYNDROME
     Dosage: 500 MG, DAILY
     Route: 048
     Dates: start: 20100927
  7. ACETYLSALICYLIC ACID [Concomitant]

REACTIONS (3)
  - VIRAL INFECTION [None]
  - MALAISE [None]
  - CLOSTRIDIAL INFECTION [None]
